FAERS Safety Report 5404934-0 (Version None)
Quarter: 2007Q3

REPORT INFORMATION
  Report Type: 
  Country: None (occurrence: None)
  Receive Date: 20070803
  Receipt Date: 20070721
  Transmission Date: 20080115
  Serious: Yes (Other)
  Sender: FDA-Public Use
  Company Number: US-AMGEN-US235429

PATIENT
  Sex: Female

DRUGS (1)
  1. ENBREL [Suspect]
     Indication: RHEUMATOID ARTHRITIS
     Route: 058
     Dates: start: 20040501

REACTIONS (5)
  - CONTUSION [None]
  - HYPOAESTHESIA [None]
  - INJECTION SITE PRURITUS [None]
  - INJECTION SITE RASH [None]
  - PAIN [None]
